FAERS Safety Report 4802509-5 (Version None)
Quarter: 2005Q4

REPORT INFORMATION
  Report Type: 
  Country: None (occurrence: None)
  Receive Date: 20051018
  Receipt Date: 20050726
  Transmission Date: 20060501
  Serious: Yes (Hospitalization)
  Sender: FDA-Public Use
  Company Number: US-MERCK-0507USA04219

PATIENT
  Age: 53 Year
  Sex: Male
  Weight: 73 kg

DRUGS (6)
  1. VIOXX [Suspect]
     Route: 048
     Dates: end: 20030601
  2. VIOXX [Suspect]
     Route: 048
     Dates: start: 20030601
  3. VIAGRA [Concomitant]
     Route: 065
  4. VOLMAX [Concomitant]
     Route: 048
  5. VISTARIL [Concomitant]
     Route: 048
  6. PAXIL [Concomitant]
     Route: 065

REACTIONS (16)
  - ANGINA PECTORIS [None]
  - ASTHENIA [None]
  - CARDIAC DISORDER [None]
  - CAROTID ARTERY DISEASE [None]
  - CHEST DISCOMFORT [None]
  - CORONARY ARTERY DISEASE [None]
  - CORONARY ARTERY STENOSIS [None]
  - DYSPNOEA [None]
  - EJECTION FRACTION DECREASED [None]
  - ERECTILE DYSFUNCTION [None]
  - FLUSHING [None]
  - HEART RATE IRREGULAR [None]
  - INCREASED TENDENCY TO BRUISE [None]
  - INSOMNIA [None]
  - PULSE ABNORMAL [None]
  - THROAT TIGHTNESS [None]
